FAERS Safety Report 17955274 (Version 1)
Quarter: 2020Q2

REPORT INFORMATION
  Report Type: Spontaneous
  Country: US (occurrence: US)
  Receive Date: 20200629
  Receipt Date: 20200629
  Transmission Date: 20200714
  Serious: Yes (Other)
  Sender: FDA-Public Use
  Company Number: US-STRIDES ARCOLAB LIMITED-2020SP005155

PATIENT
  Age: 72 Year
  Sex: Female

DRUGS (9)
  1. ALBENDAZOLE. [Suspect]
     Active Substance: ALBENDAZOLE
     Dosage: CRUSHING ALBENDAZOLE TABLETS
     Route: 065
  2. SULFAMETHOXAZOLE AND TRIMETHOPRIM [Concomitant]
     Active Substance: SULFAMETHOXAZOLE\TRIMETHOPRIM
     Indication: DIARRHOEA
  3. SULFAMETHOXAZOLE AND TRIMETHOPRIM [Concomitant]
     Active Substance: SULFAMETHOXAZOLE\TRIMETHOPRIM
     Indication: CLOSTRIDIUM DIFFICILE COLITIS
     Dosage: UNK
     Route: 048
  4. VANCOMYCIN [Concomitant]
     Active Substance: VANCOMYCIN
     Indication: CLOSTRIDIUM DIFFICILE COLITIS
     Dosage: UNK
     Route: 048
  5. ALBENDAZOLE. [Suspect]
     Active Substance: ALBENDAZOLE
     Indication: MICROSPORIDIA INFECTION
     Dosage: 400 MILLIGRAM, BID, SIX DOSES BUT THE MEDICATION WAS DISCONTINUED SECONDARY TO CONCERN OF ITS EFFECT
     Route: 065
  6. METRONIDAZOLE. [Concomitant]
     Active Substance: METRONIDAZOLE
     Indication: DIARRHOEA
  7. METRONIDAZOLE. [Concomitant]
     Active Substance: METRONIDAZOLE
     Indication: CLOSTRIDIUM DIFFICILE COLITIS
     Dosage: UNK
     Route: 065
  8. CHOLESTYRAMINE. [Concomitant]
     Active Substance: CHOLESTYRAMINE
     Indication: DIARRHOEA
     Dosage: UNK
     Route: 065
  9. VANCOMYCIN [Concomitant]
     Active Substance: VANCOMYCIN
     Indication: DIARRHOEA

REACTIONS (4)
  - Off label use [Unknown]
  - Treatment failure [Unknown]
  - Product residue present [Unknown]
  - Wrong technique in product usage process [Unknown]
